FAERS Safety Report 8494869-1 (Version None)
Quarter: 2012Q3

REPORT INFORMATION
  Report Type: 
  Country: None (occurrence: None)
  Receive Date: 20120709
  Receipt Date: 20120627
  Transmission Date: 20120928
  Serious: Yes (Hospitalization, Other)
  Sender: FDA-Public Use
  Company Number: CN-NOVOPROD-354843

PATIENT
  Age: 12 Year
  Sex: Female
  Weight: 39 kg

DRUGS (3)
  1. NOVORAPID PENFILL [Suspect]
     Dosage: 35 U, QD
     Route: 058
     Dates: start: 20120520, end: 20120627
  2. NOVORAPID PENFILL [Suspect]
     Indication: TYPE 1 DIABETES MELLITUS
     Dosage: 35 U, QD
     Route: 058
  3. NOVORAPID PENFILL [Suspect]
     Dosage: 35 U, QD
     Route: 058

REACTIONS (3)
  - CHEST DISCOMFORT [None]
  - PRODUCT PHYSICAL ISSUE [None]
  - BLOOD GLUCOSE INCREASED [None]
